FAERS Safety Report 9539575 (Version 1)
Quarter: 2013Q3

REPORT INFORMATION
  Report Type: Spontaneous
  Country: BR (occurrence: BR)
  Receive Date: 20130920
  Receipt Date: 20130920
  Transmission Date: 20140515
  Serious: Yes (Other)
  Sender: FDA-Public Use
  Company Number: BR-JNJFOC-20130909849

PATIENT
  Sex: Female
  Weight: 68 kg

DRUGS (4)
  1. ULTRACET [Suspect]
     Indication: MYALGIA
     Dosage: 37.5MG TWICE A DAY
     Route: 065
  2. PROPRANOLOL [Concomitant]
     Indication: TACHYCARDIA
     Route: 065
  3. CALCIUM [Concomitant]
     Route: 065
  4. VITAMIN D [Concomitant]
     Route: 065

REACTIONS (2)
  - Cystitis [Unknown]
  - Urine output increased [Unknown]
